APPROVED DRUG PRODUCT: POTASSIUM CHLORIDE
Active Ingredient: POTASSIUM CHLORIDE
Strength: 10MEQ
Dosage Form/Route: TABLET, EXTENDED RELEASE;ORAL
Application: A211797 | Product #002 | TE Code: AB2
Applicant: GRANULES PHARMACEUTICALS INC
Approved: Mar 4, 2020 | RLD: No | RS: No | Type: RX